FAERS Safety Report 5637220-4 (Version None)
Quarter: 2008Q1

REPORT INFORMATION
  Report Type: 
  Country: None (occurrence: None)
  Receive Date: 20080225
  Receipt Date: 20080218
  Transmission Date: 20080703
  Serious: Yes (Hospitalization)
  Sender: FDA-Public Use
  Company Number: FR-AVENTIS-200810681FR

PATIENT
  Age: 75 Year
  Sex: Male

DRUGS (14)
  1. LOVENOX [Suspect]
     Indication: DEEP VEIN THROMBOSIS
     Route: 058
     Dates: start: 20070428, end: 20070513
  2. LOVENOX [Suspect]
     Route: 058
     Dates: start: 20070514, end: 20070519
  3. CORTANCYL [Concomitant]
     Route: 048
  4. CACIT D3 [Concomitant]
     Route: 048
  5. SPECIAFOLDINE [Concomitant]
     Route: 048
  6. DAFALGAN                           /00020001/ [Concomitant]
     Route: 048
  7. NEXIUM [Concomitant]
     Route: 048
  8. SOLU-MEDROL [Concomitant]
     Route: 042
  9. DRUGS AFFECTING MINERALIZATION [Concomitant]
     Route: 048
  10. IMUREL                             /00001501/ [Concomitant]
  11. DOXYCYCLINE [Concomitant]
     Route: 048
  12. PERFALGAN [Concomitant]
     Route: 042
  13. ACTRAPID [Concomitant]
     Route: 058
  14. JOSIR [Concomitant]

REACTIONS (4)
  - ANAEMIA [None]
  - CIRCULATORY COLLAPSE [None]
  - HEPARIN-INDUCED THROMBOCYTOPENIA [None]
  - RECTAL HAEMORRHAGE [None]
